FAERS Safety Report 8782108 (Version 1)
Quarter: 2012Q4

REPORT INFORMATION
  Report Type: Report from Study
  Country: US (occurrence: US)
  Receive Date: 20120913
  Receipt Date: 20120913
  Transmission Date: 20130627
  Serious: No
  Sender: FDA-Public Use
  Company Number: US-VERTEX PHARMACEUTICAL INC.-AE-2012-008729

PATIENT

DRUGS (4)
  1. INCIVEK [Suspect]
     Indication: HEPATITIS C
     Route: 048
     Dates: start: 201203
  2. RIBASPHERE [Concomitant]
     Indication: HEPATITIS C
     Dates: start: 201203
  3. DIOVAN HCT [Concomitant]
  4. OMEPRAZOLE DR [Concomitant]

REACTIONS (1)
  - Haemorrhoids [Unknown]
